FAERS Safety Report 4548447-7 (Version None)
Quarter: 2004Q4

REPORT INFORMATION
  Report Type: 
  Country: None (occurrence: None)
  Receive Date: 20041227
  Receipt Date: 20041025
  Transmission Date: 20050328
  Serious: Yes (Hospitalization)
  Sender: FDA-Public Use
  Company Number: 04P-163-0278539-00

PATIENT
  Age: 69 Year
  Sex: Female
  Weight: 83.4619 kg

DRUGS (7)
  1. HUMIRA [Suspect]
     Indication: RHEUMATOID ARTHRITIS
     Dosage: 40 MG, 1 IN 2 WK, SUBCUTANEOUS
     Route: 058
     Dates: start: 20031001, end: 20040918
  2. PREDNISONE [Concomitant]
  3. FEXOFENADINE HYDROCHLORIDE [Concomitant]
  4. FLUTICASONE PROPIONATE [Concomitant]
  5. COMBIVENT [Concomitant]
  6. METOPROLOL SUCCINATE [Concomitant]
  7. OMEPRAZOLE [Concomitant]

REACTIONS (1)
  - PNEUMONIA [None]
